FAERS Safety Report 18175694 (Version 2)
Quarter: 2020Q3

REPORT INFORMATION
  Report Type: Spontaneous
  Country: US (occurrence: US)
  Receive Date: 20200820
  Receipt Date: 20200901
  Transmission Date: 20201103
  Serious: Yes (Hospitalization, Other)
  Sender: FDA-Public Use
  Company Number: US-BEH-2020121524

PATIENT
  Sex: Male

DRUGS (2)
  1. HAEGARDA [Suspect]
     Active Substance: HUMAN C1-ESTERASE INHIBITOR
     Indication: HEREDITARY ANGIOEDEMA
     Dosage: 5700 INTERNATIONAL UNIT, BIW, EVERY 3 DAYS
     Route: 058
     Dates: start: 2018
  2. HAEGARDA [Suspect]
     Active Substance: HUMAN C1-ESTERASE INHIBITOR
     Indication: PROPHYLAXIS

REACTIONS (5)
  - COVID-19 [Unknown]
  - Product dose omission issue [Unknown]
  - Staphylococcal infection [Unknown]
  - Vascular device infection [Unknown]
  - No adverse event [Unknown]
